FAERS Safety Report 9502118 (Version 2)
Quarter: 2013Q3

REPORT INFORMATION
  Report Type: Report from Study
  Country: CN (occurrence: CN)
  Receive Date: 20130905
  Receipt Date: 20130918
  Transmission Date: 20140515
  Serious: No
  Sender: FDA-Public Use
  Company Number: CN-US-EMD SERONO, INC.-7230021

PATIENT
  Sex: Female
  Weight: 33 kg

DRUGS (1)
  1. SAIZEN [Suspect]
     Indication: GROWTH HORMONE DEFICIENCY
     Dosage: 3.33
     Dates: start: 2009

REACTIONS (1)
  - Limb asymmetry [Unknown]
